FAERS Safety Report 22285377 (Version 2)
Quarter: 2023Q2

REPORT INFORMATION
  Report Type: Spontaneous
  Country: GB (occurrence: GB)
  Receive Date: 20230504
  Receipt Date: 20230509
  Transmission Date: 20230721
  Serious: Yes (Other)
  Sender: FDA-Public Use
  Company Number: GB-009507513-2305GBR000660

PATIENT

DRUGS (1)
  1. LAGEVRIO [Suspect]
     Active Substance: MOLNUPIRAVIR
     Route: 048
     Dates: start: 20230426

REACTIONS (3)
  - Syncope [Unknown]
  - Diarrhoea [Unknown]
  - Wound secretion [Unknown]

NARRATIVE: CASE EVENT DATE: 20230401
